FAERS Safety Report 17099313 (Version 1)
Quarter: 2019Q4

REPORT INFORMATION
  Report Type: Spontaneous
  Country: US (occurrence: US)
  Receive Date: 20191201
  Receipt Date: 20191201
  Transmission Date: 20200122
  Serious: No
  Sender: FDA-Public Use
  Company Number: None

PATIENT
  Age: 30 Year
  Sex: Female
  Weight: 45 kg

DRUGS (11)
  1. ELECAMPANE [Concomitant]
  2. VITAMINS D3 [Concomitant]
  3. GUAIFENESIN AND CODEINE PHOSPHATE SYRUP [Suspect]
     Active Substance: CODEINE PHOSPHATE\GUAIFENESIN
     Indication: BRONCHITIS
     Dosage: ?          QUANTITY:1 TEASPOON(S);?
     Route: 048
     Dates: start: 20191125, end: 20191127
  4. ARTICHOKE EXTRACT [Concomitant]
  5. DIGESTIVE ENZYME [Concomitant]
     Active Substance: UNSPECIFIED INGREDIENT
  6. SAME 400MG [Concomitant]
  7. P5P [Concomitant]
  8. ANDROGRAPHIS [Concomitant]
  9. POTASSIUM [Concomitant]
     Active Substance: POTASSIUM
  10. ZINC. [Concomitant]
     Active Substance: ZINC
  11. LIPOSOMAL C [Concomitant]

REACTIONS (3)
  - Bronchitis [None]
  - Cough [None]
  - Umbilical hernia [None]

NARRATIVE: CASE EVENT DATE: 20191125
